FAERS Safety Report 7323356-9 (Version None)
Quarter: 2011Q1

REPORT INFORMATION
  Report Type: 
  Country: None (occurrence: None)
  Receive Date: 20110301
  Receipt Date: 20110218
  Transmission Date: 20110831
  Serious: Yes (Other)
  Sender: FDA-Public Use
  Company Number: ES-ELI_LILLY_AND_COMPANY-ES201102005352

PATIENT
  Sex: Female

DRUGS (6)
  1. FORTEO [Suspect]
     Indication: OSTEOPOROSIS
     Dosage: 20 UG, DAILY (1/D)
     Route: 058
     Dates: start: 20100401
  2. GLIZOLAN [Concomitant]
     Indication: ARTHRITIS
     Dosage: UNK, DAILY (1/D)
     Route: 048
  3. SECALIP [Concomitant]
     Indication: HYPERCHOLESTEROLAEMIA
     Dosage: 1 D/F, DAILY (1/D)
     Route: 048
  4. PARACETAMOL [Concomitant]
     Dosage: 3 D/F, DAILY (1/D)
     Route: 048
  5. IRON [Concomitant]
     Indication: ANAEMIA
     Dosage: 1 D/F, DAILY (1/D)
     Route: 048
  6. OMEPRAZOLE [Concomitant]
     Indication: ABDOMINAL DISCOMFORT
     Dosage: 1 D/F, DAILY (1/D)
     Route: 048

REACTIONS (5)
  - HAEMATOCHEZIA [None]
  - COLONIC POLYP [None]
  - FAECES DISCOLOURED [None]
  - BLOOD CHOLESTEROL INCREASED [None]
  - INJECTION SITE HAEMATOMA [None]
